FAERS Safety Report 17820812 (Version 1)
Quarter: 2020Q2

REPORT INFORMATION
  Report Type: Spontaneous
  Country: GB (occurrence: GB)
  Receive Date: 20200525
  Receipt Date: 20200525
  Transmission Date: 20200714
  Serious: Yes (Hospitalization, Disabling)
  Sender: FDA-Public Use
  Company Number: GB-009507513-2005GBR007019

PATIENT
  Age: 67 Year
  Sex: Male
  Weight: 89.3 kg

DRUGS (3)
  1. ONCOTICE [Suspect]
     Active Substance: BACILLUS CALMETTE-GUERIN SUBSTRAIN TICE LIVE ANTIGEN
     Indication: BLADDER CANCER
     Dosage: 12.5 MILLIGRAM, UNK
  2. CIPROFLOXACIN. [Concomitant]
     Active Substance: CIPROFLOXACIN
     Dosage: UNK
  3. TAMSULOSIN HYDROCHLORIDE. [Concomitant]
     Active Substance: TAMSULOSIN HYDROCHLORIDE
     Dosage: UNK

REACTIONS (5)
  - Diverticulitis [Unknown]
  - Lower urinary tract symptoms [Recovering/Resolving]
  - Prostatitis [Unknown]
  - Perineal pain [Recovering/Resolving]
  - Disseminated Bacillus Calmette-Guerin infection [Unknown]

NARRATIVE: CASE EVENT DATE: 20191113
